FAERS Safety Report 7319716-2 (Version None)
Quarter: 2011Q1

REPORT INFORMATION
  Report Type: 
  Country: None (occurrence: None)
  Receive Date: 20110228
  Receipt Date: 20100818
  Transmission Date: 20110831
  Serious: No
  Sender: FDA-Public Use
  Company Number: A0876535A

PATIENT
  Age: 37 Year
  Sex: Female

DRUGS (5)
  1. LAMOTRIGINE [Suspect]
     Indication: DEPRESSED MOOD
     Route: 048
  2. YAZ [Concomitant]
  3. LAMICTAL [Suspect]
     Indication: DEPRESSED MOOD
     Dosage: 250MG PER DAY
     Route: 048
     Dates: start: 20100804
  4. ADDERALL 10 [Concomitant]
  5. SERZONE [Concomitant]

REACTIONS (3)
  - METRORRHAGIA [None]
  - ALOPECIA [None]
  - MADAROSIS [None]
